FAERS Safety Report 25707320 (Version 1)
Quarter: 2025Q3

REPORT INFORMATION
  Report Type: Spontaneous
  Country: US (occurrence: US)
  Receive Date: 20250820
  Receipt Date: 20250820
  Transmission Date: 20251020
  Serious: Yes (Other)
  Sender: BAYER HEALTHCARE LLC
  Company Number: US-BAYER-2025A108803

PATIENT
  Age: 61 Year
  Sex: Female

DRUGS (2)
  1. MICONAZOLE NITRATE [Suspect]
     Active Substance: MICONAZOLE NITRATE
  2. TINACTIN [Suspect]
     Active Substance: TOLNAFTATE

REACTIONS (6)
  - Mesothelioma malignant [None]
  - Exposure to chemical pollution [None]
  - Lung disorder [None]
  - Emotional distress [None]
  - Injury [None]
  - Pain [None]

NARRATIVE: CASE EVENT DATE: 20250703
